FAERS Safety Report 7298854-7 (Version None)
Quarter: 2011Q1

REPORT INFORMATION
  Report Type: 
  Country: None (occurrence: None)
  Receive Date: 20110209
  Receipt Date: 20110208
  Transmission Date: 20110831
  Serious: Yes (Congenital Anomaly)
  Sender: FDA-Public Use
  Company Number: GRT 2011-10388

PATIENT

DRUGS (7)
  1. LIDODERM [Suspect]
     Dates: start: 20090501, end: 20091001
  2. LYRICA [Concomitant]
  3. PROPOFAN (CAFFEIN, CARBASALATE CALCIUM, CHLORPHENAMINE MALEATE, DEXTRO [Concomitant]
  4. ATARAX [Suspect]
     Dates: start: 20090501, end: 20091001
  5. ESCITALOPRAM [Suspect]
     Dates: start: 20090501
  6. FOLIC ACID [Concomitant]
  7. MYOLASTAN (TETRAZEPAM) [Concomitant]

REACTIONS (4)
  - TALIPES [None]
  - SPINA BIFIDA [None]
  - ARNOLD-CHIARI MALFORMATION [None]
  - MATERNAL DRUGS AFFECTING FOETUS [None]
